FAERS Safety Report 5605194-8 (Version None)
Quarter: 2008Q1

REPORT INFORMATION
  Report Type: 
  Country: None (occurrence: None)
  Receive Date: 20080124
  Receipt Date: 20080117
  Transmission Date: 20080703
  Serious: Yes (Hospitalization)
  Sender: FDA-Public Use
  Company Number: 2008SP001512

PATIENT
  Age: 42 Year
  Sex: Female

DRUGS (2)
  1. PEG-INTRON [Suspect]
     Indication: HEPATITIS C
     Dosage: SC
     Route: 058
     Dates: start: 20071130
  2. RIBAVIRIN [Suspect]
     Indication: HEPATITIS C
     Dates: start: 20071130

REACTIONS (2)
  - ASTHMA [None]
  - RESPIRATORY TRACT INFECTION [None]
